FAERS Safety Report 18965164 (Version 1)
Quarter: 2021Q1

REPORT INFORMATION
  Report Type: Spontaneous
  Country: CN (occurrence: CN)
  Receive Date: 20210303
  Receipt Date: 20210303
  Transmission Date: 20210420
  Serious: Yes (Hospitalization, Other)
  Sender: FDA-Public Use
  Company Number: CN-PFIZER INC-2021218521

PATIENT
  Age: 78 Year
  Sex: Male
  Weight: 55.6 kg

DRUGS (1)
  1. VFEND [Suspect]
     Active Substance: VORICONAZOLE
     Indication: SYMPTOMATIC TREATMENT
     Dosage: 0.2 G, 2X/DAY
     Route: 041
     Dates: start: 20210204, end: 20210206

REACTIONS (3)
  - Coagulopathy [Unknown]
  - Hepatic function abnormal [Not Recovered/Not Resolved]
  - Multiple organ dysfunction syndrome [Unknown]

NARRATIVE: CASE EVENT DATE: 20210206
